FAERS Safety Report 9519997 (Version 1)
Quarter: 2013Q1

REPORT INFORMATION
  Report Type: Spontaneous
  Country: US (occurrence: None)
  Receive Date: 20130305
  Receipt Date: 20130305
  Transmission Date: 20140127
  Serious: Yes (Other)
  Sender: FDA-Public Use
  Company Number: 163-21880-11122214

PATIENT
  Age: 58 Year
  Sex: Male
  Weight: 99.79 kg

DRUGS (12)
  1. REVLIMID [Suspect]
     Indication: PLASMA CELL MYELOMA
     Route: 048
     Dates: start: 201002, end: 2010
  2. ATIVAN (LORAZEPAM) [Concomitant]
  3. LASIX (FUROSEMIDE) [Concomitant]
  4. LYRICA (PREGABALIN) [Concomitant]
  5. ACYCLOVIR (ACICLOVIR) (ACICLOVIR) [Concomitant]
  6. ASA (ACETYLSALICYLIC ACID) [Concomitant]
  7. VITAMIN B12 (CYANOCOBALAMIN) [Concomitant]
  8. FOLIC ACID (FOLIC ACID) [Concomitant]
  9. B COMPLEX (BECOSYM FORTE) [Concomitant]
  10. VITAMIN D (ERGOCALCIFEROL) [Concomitant]
  11. ZOFRAN (ONDANSETRON HYDROCHLORIDE) [Concomitant]
  12. KLOR-CON (POTASSIUM CHLORIDE) [Concomitant]

REACTIONS (1)
  - Pneumonia [None]
